FAERS Safety Report 10082377 (Version 1)
Quarter: 2014Q2

REPORT INFORMATION
  Report Type: Spontaneous
  Country: FR (occurrence: FR)
  Receive Date: 20140416
  Receipt Date: 20140416
  Transmission Date: 20141212
  Serious: Yes (Other)
  Sender: FDA-Public Use
  Company Number: FR-MYLANLABS-2014S1007808

PATIENT
  Age: 39 Year
  Sex: Female

DRUGS (4)
  1. ACICLOVIR [Suspect]
     Indication: HERPES VIRUS INFECTION
     Route: 042
     Dates: start: 20140310, end: 20140318
  2. PREZISTA [Concomitant]
     Indication: HIV INFECTION
     Dates: start: 2012
  3. EDURANT [Concomitant]
     Indication: HIV INFECTION
     Dates: start: 2012
  4. ISENTRESS [Concomitant]
     Indication: HIV INFECTION
     Dates: start: 2012

REACTIONS (1)
  - Neutropenia [Recovering/Resolving]
